FAERS Safety Report 5512774-7 (Version None)
Quarter: 2007Q4

REPORT INFORMATION
  Report Type: 
  Country: None (occurrence: None)
  Receive Date: 20071108
  Receipt Date: 20071030
  Transmission Date: 20080405
  Serious: Yes (Hospitalization)
  Sender: FDA-Public Use
  Company Number: 2007US001696

PATIENT
  Age: 16 Year
  Sex: Male

DRUGS (1)
  1. FK506-OINTMENT (TACROLIMUS OINTMENT) FK506 - OINTMENT(TACROLIMUS) OINT [Suspect]
     Indication: DERMATITIS ATOPIC
     Dosage: 0.1 %, BID, TOPICAL
     Route: 061
     Dates: start: 20060217

REACTIONS (1)
  - HYPERTHYROIDISM [None]
